FAERS Safety Report 20135949 (Version 2)
Quarter: 2021Q4

REPORT INFORMATION
  Report Type: Spontaneous
  Country: NL (occurrence: NL)
  Receive Date: 20211201
  Receipt Date: 20211209
  Transmission Date: 20220303
  Serious: Yes (Other)
  Sender: FDA-Public Use
  Company Number: NL-MLMSERVICE-20211117-3223486-1

PATIENT
  Age: 62 Year
  Sex: Male

DRUGS (6)
  1. CARBOPLATIN [Suspect]
     Active Substance: CARBOPLATIN
     Indication: Non-small cell lung cancer metastatic
     Dosage: 4 COURSES
     Dates: start: 201803
  2. PEMETREXED [Suspect]
     Active Substance: PEMETREXED
     Indication: Non-small cell lung cancer metastatic
     Dosage: MAINTENANCE THERAPY
     Dates: start: 2018
  3. PEMETREXED [Suspect]
     Active Substance: PEMETREXED
     Dosage: 4 COURSES
     Dates: start: 201803
  4. PREDNISOLONE [Suspect]
     Active Substance: PREDNISOLONE
     Indication: Toxic skin eruption
     Dosage: 40 MG, 1X/DAY
     Dates: start: 202001
  5. PREDNISOLONE [Suspect]
     Active Substance: PREDNISOLONE
     Dosage: TAPERING
     Dates: start: 2020
  6. NIVOLUMAB [Concomitant]
     Active Substance: NIVOLUMAB
     Indication: Non-small cell lung cancer metastatic
     Dosage: UNK
     Dates: start: 201909

REACTIONS (3)
  - Mucocutaneous leishmaniasis [Recovered/Resolved]
  - Visceral leishmaniasis [Recovered/Resolved]
  - Off label use [Unknown]

NARRATIVE: CASE EVENT DATE: 20180301
